FAERS Safety Report 9278458 (Version 1)
Quarter: 2013Q2

REPORT INFORMATION
  Report Type: Spontaneous
  Country: US (occurrence: US)
  Receive Date: 20130508
  Receipt Date: 20130508
  Transmission Date: 20140414
  Serious: No
  Sender: FDA-Public Use
  Company Number: US-009507513-1305USA003201

PATIENT
  Sex: Female
  Weight: 56.24 kg

DRUGS (7)
  1. PEGINTRON [Suspect]
     Indication: HEPATITIS C
  2. REBETOL [Suspect]
  3. PRINIVIL [Concomitant]
  4. XANAX [Concomitant]
  5. VITAMIN E [Concomitant]
  6. ATENOLOL [Concomitant]
  7. IBUPROFEN [Concomitant]

REACTIONS (1)
  - Haemoglobin decreased [Unknown]
